FAERS Safety Report 9306772 (Version 1)
Quarter: 2013Q2

REPORT INFORMATION
  Report Type: Spontaneous
  Country: US (occurrence: US)
  Receive Date: 20130523
  Receipt Date: 20130523
  Transmission Date: 20140414
  Serious: Yes (Hospitalization)
  Sender: FDA-Public Use
  Company Number: US-US-EMD SERONO, INC.-234997K09USA

PATIENT
  Age: 52 Year
  Sex: Female
  Weight: 48 kg

DRUGS (2)
  1. REBIF [Suspect]
     Indication: MULTIPLE SCLEROSIS
     Route: 058
     Dates: start: 20080313, end: 200903
  2. REBIF [Suspect]
     Route: 058
     Dates: start: 2009

REACTIONS (4)
  - Fungal infection [Recovering/Resolving]
  - Clostridial infection [Recovering/Resolving]
  - Multiple sclerosis relapse [Recovering/Resolving]
  - Stress [Unknown]
